FAERS Safety Report 8625928-8 (Version None)
Quarter: 2012Q3

REPORT INFORMATION
  Report Type: 
  Country: None (occurrence: None)
  Receive Date: 20120827
  Receipt Date: 20120820
  Transmission Date: 20120928
  Serious: Yes (Hospitalization)
  Sender: FDA-Public Use
  Company Number: DE-TEVA-354762GER

PATIENT
  Age: 47 Year
  Sex: Male
  Weight: 102 kg

DRUGS (1)
  1. PENTOXIFYLLINE [Suspect]
     Indication: SUDDEN HEARING LOSS
     Dosage: 1200 MILLIGRAM DAILY;
     Route: 048
     Dates: start: 20120320, end: 20120324

REACTIONS (1)
  - PANCREATITIS RELAPSING [None]
